FAERS Safety Report 12624692 (Version 5)
Quarter: 2020Q4

REPORT INFORMATION
  Report Type: Spontaneous
  Country: US (occurrence: US)
  Receive Date: 20160805
  Receipt Date: 20201127
  Transmission Date: 20210113
  Serious: No
  Sender: FDA-Public Use
  Company Number: US-PFIZER INC-2016352575

PATIENT
  Age: 63 Year
  Sex: Female

DRUGS (4)
  1. SUTENT [Suspect]
     Active Substance: SUNITINIB MALATE
     Indication: PANCREATIC NEUROENDOCRINE TUMOUR
     Dosage: 37.5 MG, 1X/DAY
  2. SUTENT [Suspect]
     Active Substance: SUNITINIB MALATE
     Indication: NEUROENDOCRINE TUMOUR
     Dosage: 12.5 MG, DAILY (EVERY DAY)
     Route: 048
  3. SUTENT [Suspect]
     Active Substance: SUNITINIB MALATE
     Indication: CARCINOID SYNDROME
     Dosage: 25 MG, DAILY (EVERY DAY)
     Route: 048
     Dates: start: 20140411
  4. SUTENT [Suspect]
     Active Substance: SUNITINIB MALATE
     Indication: BRONCHIAL CARCINOMA
     Dosage: 37.5 MG, DAILY
     Route: 048

REACTIONS (3)
  - Blister [Unknown]
  - Dry skin [Unknown]
  - Skin exfoliation [Unknown]

NARRATIVE: CASE EVENT DATE: 20160718
